FAERS Safety Report 13763700 (Version 1)
Quarter: 2017Q3

REPORT INFORMATION
  Report Type: Spontaneous
  Country: SE (occurrence: SE)
  Receive Date: 20170718
  Receipt Date: 20170718
  Transmission Date: 20171127
  Serious: Yes (Disabling)
  Sender: FDA-Public Use
  Company Number: SE-009507513-1707SWE004105

PATIENT
  Age: 23 Year
  Sex: Male

DRUGS (1)
  1. PROPECIA [Suspect]
     Active Substance: FINASTERIDE
     Indication: ALOPECIA
     Dosage: 1 MG (1 TABLET), QD
     Route: 048
     Dates: start: 201405, end: 2016

REACTIONS (4)
  - Pharyngeal oedema [Unknown]
  - Depressed mood [Not Recovered/Not Resolved]
  - Skin mass [Not Recovered/Not Resolved]
  - Lymphadenopathy [Unknown]

NARRATIVE: CASE EVENT DATE: 2016
